FAERS Safety Report 4589188-X (Version None)
Quarter: 2005Q1

REPORT INFORMATION
  Report Type: 
  Country: None (occurrence: None)
  Receive Date: 20050215
  Receipt Date: 20050215
  Transmission Date: 20050727
  Serious: Yes (Hospitalization)
  Sender: FDA-Public Use
  Company Number: None

PATIENT
  Age: 70 Year
  Sex: Female
  Weight: 65.71 kg

DRUGS (12)
  1. CARBAMAZEPINE [Suspect]
     Indication: NEUROPATHY PERIPHERAL
     Dosage: 200 MG Q MORNING ORAL  ; 400 MG Q EVENING ORAL
     Route: 048
     Dates: start: 20050112, end: 20050207
  2. CARBAMAZEPINE [Suspect]
     Indication: NEUROPATHY PERIPHERAL
     Dosage: 200 MG Q MORNING ORAL  ; 400 MG Q EVENING ORAL
     Route: 048
     Dates: start: 20050209, end: 20050212
  3. ATORVASTATIN [Concomitant]
  4. PRAVASTATIN [Concomitant]
  5. METFORMIN [Concomitant]
  6. CYANOCOBALAMIN [Concomitant]
  7. DULOXATINE [Concomitant]
  8. PAROXETINE CR [Concomitant]
  9. CONJUGATED ESTROGENS [Concomitant]
  10. CLONAZEPAM [Concomitant]
  11. CETIRIZINE HCL [Concomitant]
  12. OXCARBAZEPINE [Concomitant]

REACTIONS (5)
  - CONFUSIONAL STATE [None]
  - COORDINATION ABNORMAL [None]
  - DISORIENTATION [None]
  - FATIGUE [None]
  - PANCREATITIS [None]
